FAERS Safety Report 9267340 (Version 1)
Quarter: 2013Q2

REPORT INFORMATION
  Report Type: Spontaneous
  Country: US (occurrence: US)
  Receive Date: 20130502
  Receipt Date: 20130502
  Transmission Date: 20140414
  Serious: No
  Sender: FDA-Public Use
  Company Number: US-TEVA-401324USA

PATIENT
  Age: 32 Year
  Sex: Female
  Weight: 77.18 kg

DRUGS (2)
  1. PLAN B ONE-STEP [Suspect]
     Indication: POST COITAL CONTRACEPTION
     Dosage: 1.5 MILLIGRAM DAILY;
     Route: 048
     Dates: start: 20130421, end: 20130421
  2. LISINOPRIL [Concomitant]
     Indication: HYPERTENSION

REACTIONS (6)
  - Hypertension [Unknown]
  - Fatigue [Not Recovered/Not Resolved]
  - Nausea [Not Recovered/Not Resolved]
  - Abdominal pain lower [Recovered/Resolved]
  - Headache [Not Recovered/Not Resolved]
  - Pelvic pain [Recovered/Resolved]
